FAERS Safety Report 6876882-0 (Version None)
Quarter: 2010Q2

REPORT INFORMATION
  Report Type: 
  Country: None (occurrence: None)
  Receive Date: 20100616
  Receipt Date: 20100416
  Transmission Date: 20101027
  Serious: No
  Sender: FDA-Public Use
  Company Number: DSA_42957_2010

PATIENT
  Sex: Female

DRUGS (7)
  1. XENAZINE [Suspect]
     Indication: HUNTINGTON'S CHOREA
     Dosage: (25 MG TID ORAL), (25 MG BID ORAL)
     Route: 048
     Dates: start: 20090330, end: 20100412
  2. XENAZINE [Suspect]
     Indication: HUNTINGTON'S CHOREA
     Dosage: (25 MG TID ORAL), (25 MG BID ORAL)
     Route: 048
     Dates: start: 20100413
  3. DIAZEPAM [Concomitant]
  4. ZOLOFT [Concomitant]
  5. TAPAMAX [Concomitant]
  6. FLEXERIL [Concomitant]
  7. ULTRAM [Concomitant]

REACTIONS (5)
  - ANXIETY [None]
  - APATHY [None]
  - CRYING [None]
  - DEPRESSION [None]
  - INFLUENZA LIKE ILLNESS [None]
